FAERS Safety Report 17623382 (Version 24)
Quarter: 2025Q3

REPORT INFORMATION
  Report Type: Report from Study
  Country: US (occurrence: US)
  Receive Date: 20200403
  Receipt Date: 20250825
  Transmission Date: 20251021
  Serious: Yes (Hospitalization, Other)
  Sender: TAKEDA
  Company Number: US-SHIRE-US202008310

PATIENT
  Age: 63 Year
  Sex: Female
  Weight: 72 kg

DRUGS (27)
  1. HUMAN IMMUNOGLOBULIN G [Suspect]
     Active Substance: HUMAN IMMUNOGLOBULIN G
     Indication: Chronic inflammatory demyelinating polyradiculoneuropathy
  2. HUMAN IMMUNOGLOBULIN G [Suspect]
     Active Substance: HUMAN IMMUNOGLOBULIN G
     Indication: Myasthenia gravis
     Dosage: 45 GRAM, Q4WEEKS
     Dates: start: 20140604
  3. HUMAN IMMUNOGLOBULIN G [Suspect]
     Active Substance: HUMAN IMMUNOGLOBULIN G
     Indication: Multifocal motor neuropathy
  4. DIPHENHYDRAMINE HYDROCHLORIDE [Concomitant]
     Active Substance: DIPHENHYDRAMINE HYDROCHLORIDE
  5. MAGNESIUM OXIDE [Concomitant]
     Active Substance: MAGNESIUM OXIDE
  6. EPINEPHRINE [Concomitant]
     Active Substance: EPINEPHRINE
  7. SODIUM CHLORIDE [Concomitant]
     Active Substance: SODIUM CHLORIDE
  8. MINERALS\VITAMINS [Concomitant]
     Active Substance: MINERALS\VITAMINS
  9. ECHINACEA + GOLDENSEAL [Concomitant]
  10. HYDROXYCHLOROQUINE SULFATE [Concomitant]
     Active Substance: HYDROXYCHLOROQUINE SULFATE
  11. VITAMIN E [Concomitant]
     Active Substance: .ALPHA.-TOCOPHEROL
  12. Coq [Concomitant]
  13. ADDERALL [Concomitant]
     Active Substance: AMPHETAMINE ASPARTATE\AMPHETAMINE SULFATE\DEXTROAMPHETAMINE SACCHARATE\DEXTROAMPHETAMINE SULFATE
  14. ACETAMINOPHEN [Concomitant]
     Active Substance: ACETAMINOPHEN
  15. CELEBREX [Concomitant]
     Active Substance: CELECOXIB
  16. B complex plus vitamin c [Concomitant]
  17. HEPARIN [Concomitant]
     Active Substance: HEPARIN SODIUM
  18. HERBALS\TURMERIC [Concomitant]
     Active Substance: HERBALS\TURMERIC
  19. KRILL OIL [Concomitant]
     Active Substance: DIETARY SUPPLEMENT\KRILL OIL
  20. PYRIDOSTIGMINE [Concomitant]
     Active Substance: PYRIDOSTIGMINE
  21. L Lysine [Concomitant]
  22. FERROUS SULFATE [Concomitant]
     Active Substance: FERROUS SULFATE
  23. LEXAPRO [Concomitant]
     Active Substance: ESCITALOPRAM OXALATE
  24. VITAMIN D3 [Concomitant]
     Active Substance: CHOLECALCIFEROL
  25. PYRIDOSTIGMINE BROMIDE [Concomitant]
     Active Substance: PYRIDOSTIGMINE BROMIDE
  26. ROSUVASTATIN CALCIUM [Concomitant]
     Active Substance: ROSUVASTATIN CALCIUM
  27. FOLIC ACID [Concomitant]
     Active Substance: FOLIC ACID

REACTIONS (32)
  - Arthropod bite [Unknown]
  - Localised infection [Unknown]
  - Urosepsis [Unknown]
  - Invasive lobular breast carcinoma [Unknown]
  - Sternal fracture [Unknown]
  - Breast cancer female [Unknown]
  - Exposure to toxic agent [Unknown]
  - COVID-19 [Unknown]
  - Suspected COVID-19 [Unknown]
  - Gait disturbance [Unknown]
  - Fluid intake reduced [Unknown]
  - Road traffic accident [Unknown]
  - Limb injury [Unknown]
  - Infusion related reaction [Unknown]
  - Fall [Unknown]
  - Inability to afford medication [Unknown]
  - Insurance issue [Unknown]
  - Nasopharyngitis [Unknown]
  - Dermatitis contact [Unknown]
  - Infection [Unknown]
  - Nightmare [Unknown]
  - Product use issue [Unknown]
  - Epistaxis [Unknown]
  - Vertigo [Unknown]
  - Paraesthesia [Unknown]
  - Arthralgia [Unknown]
  - Fatigue [Unknown]
  - Headache [Unknown]
  - Myalgia [Unknown]
  - Nausea [Unknown]
  - Urticaria [Unknown]
  - Anxiety [Unknown]

NARRATIVE: CASE EVENT DATE: 20200811
